FAERS Safety Report 8669450 (Version 2)
Quarter: 2013Q4

REPORT INFORMATION
  Report Type: Spontaneous
  Country: US (occurrence: US)
  Receive Date: 20120718
  Receipt Date: 20131101
  Transmission Date: 20140711
  Serious: No
  Sender: FDA-Public Use
  Company Number: US-009507513-1205USA04531

PATIENT
  Age: 31 Year
  Sex: Female

DRUGS (2)
  1. JANUVIA [Suspect]
     Dosage: 1 DF, QD
     Route: 048
     Dates: start: 20120215
  2. JANUVIA [Suspect]
     Dosage: 1 DF, QD
     Dates: start: 201202

REACTIONS (1)
  - Palpitations [Recovered/Resolved]
